FAERS Safety Report 8486857-6 (Version None)
Quarter: 2012Q3

REPORT INFORMATION
  Report Type: 
  Country: None (occurrence: None)
  Receive Date: 20120704
  Receipt Date: 20120628
  Transmission Date: 20120928
  Serious: Yes (Other)
  Sender: FDA-Public Use
  Company Number: BE-AMGEN-BELSP2012031781

PATIENT
  Age: 37 Year
  Sex: Male
  Weight: 58 kg

DRUGS (9)
  1. VISTIDE [Suspect]
     Indication: CYTOMEGALOVIRUS INFECTION
     Dosage: UNK
     Route: 042
     Dates: start: 20111101, end: 20120401
  2. ARANESP [Suspect]
     Indication: ACUTE MYELOID LEUKAEMIA
     Dosage: 500 MUG, Q3WK
     Route: 058
     Dates: start: 20111201
  3. PROBENECID [Suspect]
     Indication: NEPHROPATHY TOXIC
     Dosage: UNK
     Route: 042
     Dates: start: 20111101, end: 20120401
  4. MABTHERA [Concomitant]
     Dosage: UNK
     Dates: start: 20120317
  5. MEDROL [Concomitant]
     Indication: GRAFT VERSUS HOST DISEASE
     Dosage: 8 MG, QD
     Route: 048
  6. SOLIAN [Concomitant]
     Indication: SCHIZOPHRENIA
     Dosage: 200 MG, QD
     Route: 048
  7. OMEPRAZOLE [Concomitant]
     Indication: GASTRITIS
     Dosage: 20 MG, QD
     Route: 048
  8. NEORAL [Concomitant]
     Indication: GRAFT VERSUS HOST DISEASE
     Dosage: 800 MG, BID
     Route: 048
  9. MABTHERA [Concomitant]
     Indication: ANAEMIA HAEMOLYTIC AUTOIMMUNE
     Dosage: UNK
     Dates: start: 20120111

REACTIONS (2)
  - THERAPEUTIC RESPONSE DECREASED [None]
  - MYELODYSPLASTIC SYNDROME [None]
